FAERS Safety Report 7518808-2 (Version None)
Quarter: 2011Q2

REPORT INFORMATION
  Report Type: 
  Country: None (occurrence: None)
  Receive Date: 20110602
  Receipt Date: 20110526
  Transmission Date: 20111010
  Serious: No
  Sender: FDA-Public Use
  Company Number: US-PFIZER INC-2011114476

PATIENT
  Sex: Female
  Weight: 62.585 kg

DRUGS (1)
  1. RELISTOR [Suspect]
     Indication: CONSTIPATION
     Dosage: 0.6 MG, ALTERNATE DAY
     Route: 058
     Dates: start: 20110511

REACTIONS (3)
  - CONFUSIONAL STATE [None]
  - FEELING ABNORMAL [None]
  - HEADACHE [None]
